FAERS Safety Report 5319179-2 (Version None)
Quarter: 2007Q1

REPORT INFORMATION
  Report Type: 
  Country: None (occurrence: None)
  Receive Date: 20070207
  Receipt Date: 20061114
  Transmission Date: 20070707
  Serious: Yes (Other)
  Sender: FDA-Public Use
  Company Number: 2006142076

PATIENT
  Age: 37 Year
  Sex: Female

DRUGS (1)
  1. DOSTINEX [Suspect]
     Indication: PITUITARY TUMOUR BENIGN
     Dosage: 1 MG (0.5 MG, 2 IN 1 WK), ORAL
     Route: 048

REACTIONS (3)
  - ANXIETY [None]
  - HEADACHE [None]
  - PAIN [None]
